FAERS Safety Report 15772226 (Version 3)
Quarter: 2019Q1

REPORT INFORMATION
  Report Type: Spontaneous
  Country: US (occurrence: US)
  Receive Date: 20181228
  Receipt Date: 20190225
  Transmission Date: 20190417
  Serious: No
  Sender: FDA-Public Use
  Company Number: US-SA-2018SA394596

PATIENT
  Age: 77 Year
  Sex: Female
  Weight: 82.09 kg

DRUGS (25)
  1. TYLENOL [Concomitant]
     Active Substance: ACETAMINOPHEN
  2. VENLAFAXINE [Concomitant]
     Active Substance: VENLAFAXINE HYDROCHLORIDE
  3. METFORMIN [Concomitant]
     Active Substance: METFORMIN HYDROCHLORIDE
  4. METOPROLOL SUCCINATE. [Concomitant]
     Active Substance: METOPROLOL SUCCINATE
  5. ELIQUIS [Concomitant]
     Active Substance: APIXABAN
  6. SPIRONOLACTONE. [Concomitant]
     Active Substance: SPIRONOLACTONE
  7. DIPHENOXYLATE/ATROPINE [Concomitant]
     Active Substance: ATROPINE\DIPHENOXYLATE
  8. ALPRAZOLAM. [Concomitant]
     Active Substance: ALPRAZOLAM
  9. FAMOTIDINE. [Concomitant]
     Active Substance: FAMOTIDINE
  10. CANDESARTAN CILEXETIL. [Concomitant]
     Active Substance: CANDESARTAN CILEXETIL
  11. FLUTICASONE PROPIONATE. [Concomitant]
     Active Substance: FLUTICASONE PROPIONATE
  12. VITAMIN D3 [Concomitant]
     Active Substance: CHOLECALCIFEROL
  13. ROSUVASTATIN CALCIUM. [Concomitant]
     Active Substance: ROSUVASTATIN CALCIUM
  14. VENTOLIN HFA [Concomitant]
     Active Substance: ALBUTEROL SULFATE
  15. CHLORTHALIDONE. [Concomitant]
     Active Substance: CHLORTHALIDONE
  16. DONEPEZIL HCL [Concomitant]
     Active Substance: DONEPEZIL HYDROCHLORIDE
  17. FLOVENT HFA [Concomitant]
     Active Substance: FLUTICASONE PROPIONATE
  18. MAGNESIUM [Concomitant]
     Active Substance: MAGNESIUM
  19. MYRBETRIQ [Concomitant]
     Active Substance: MIRABEGRON
  20. PRALUENT [Suspect]
     Active Substance: ALIROCUMAB
     Indication: TYPE IIA HYPERLIPIDAEMIA
     Dosage: 1 DF, QOW
     Route: 058
     Dates: start: 20181206
  21. COENZYME Q10 [Concomitant]
     Active Substance: UBIDECARENONE
  22. MONTELUKAST [Concomitant]
     Active Substance: MONTELUKAST SODIUM
  23. EZETIMIBE. [Concomitant]
     Active Substance: EZETIMIBE
  24. CARTIA XT [Concomitant]
     Active Substance: DILTIAZEM HYDROCHLORIDE
  25. TIOTROPIUM BROMIDE [Concomitant]
     Active Substance: TIOTROPIUM BROMIDE

REACTIONS (4)
  - Productive cough [Unknown]
  - Dry mouth [Unknown]
  - Respiratory tract congestion [Unknown]
  - Rhinorrhoea [Unknown]

NARRATIVE: CASE EVENT DATE: 20181206
